FAERS Safety Report 4569543-4 (Version None)
Quarter: 2005Q1

REPORT INFORMATION
  Report Type: 
  Country: None (occurrence: None)
  Receive Date: 20050201
  Receipt Date: 20050114
  Transmission Date: 20050727
  Serious: Yes (Hospitalization)
  Sender: FDA-Public Use
  Company Number: DSA_25671_2005

PATIENT
  Age: 81 Year
  Sex: Female

DRUGS (1)
  1. ENALAPRIL (HIGH DOSE) [Suspect]
     Indication: HYPERTENSION
     Dosage: DF

REACTIONS (6)
  - ACUTE CORONARY SYNDROME [None]
  - BLOOD PRESSURE INCREASED [None]
  - BUNDLE BRANCH BLOCK RIGHT [None]
  - CHEST PAIN [None]
  - EJECTION FRACTION DECREASED [None]
  - VENTRICULAR HYPERTROPHY [None]
